FAERS Safety Report 14079390 (Version 4)
Quarter: 2018Q2

REPORT INFORMATION
  Report Type: Spontaneous
  Country: US (occurrence: US)
  Receive Date: 20171012
  Receipt Date: 20180402
  Transmission Date: 20180711
  Serious: No
  Sender: FDA-Public Use
  Company Number: US-GLAXOSMITHKLINE-US2017153067

PATIENT
  Age: 41 Year
  Sex: Female
  Weight: 65.76 kg

DRUGS (19)
  1. BUSPAR [Concomitant]
     Active Substance: BUSPIRONE HYDROCHLORIDE
     Indication: ANXIETY
     Dosage: 2 DF, BID PRN
     Route: 048
  2. PROAIR HFA [Concomitant]
     Active Substance: ALBUTEROL SULFATE
     Indication: WHEEZING
     Dosage: 2 PUFF(S), Q4H PRN
     Route: 055
  3. TOPAMAX [Concomitant]
     Active Substance: TOPIRAMATE
     Indication: PRODUCT USED FOR UNKNOWN INDICATION
     Dosage: 1 DF, BID
     Route: 048
  4. FIORICET TABLET [Concomitant]
     Indication: HEADACHE
     Dosage: 1 DF, Q4H PRN
     Route: 048
  5. CYCLOBENZAPRINE TABLET [Concomitant]
     Indication: MUSCLE SPASMS
     Dosage: 1 DF, TID PRN
     Route: 048
  6. FLONASE [Suspect]
     Active Substance: FLUTICASONE PROPIONATE
     Indication: MULTIPLE ALLERGIES
     Dosage: 2 DF, 1D
     Route: 045
     Dates: start: 2016, end: 201711
  7. FLONASE [Suspect]
     Active Substance: FLUTICASONE PROPIONATE
     Indication: SINUS HEADACHE
  8. FLONASE [Suspect]
     Active Substance: FLUTICASONE PROPIONATE
     Indication: HYPERSENSITIVITY
     Dosage: UNK
     Dates: start: 20160901, end: 20170920
  9. FLUTICASONE PROP NASAL SPRAY [Suspect]
     Active Substance: FLUTICASONE PROPIONATE
     Dosage: 2 DF, BID
     Route: 045
  10. LIDODERM TRANSDERMAL PATCH [Concomitant]
     Indication: PAIN
     Dosage: 1 DF, QD TO BOTH FEET PRN
     Route: 061
  11. FLUTICASONE PROP NASAL SPRAY [Suspect]
     Active Substance: FLUTICASONE PROPIONATE
     Dosage: 2 DF, IN EACH NOSTRIL BID
  12. AMBIEN TABLET [Concomitant]
     Indication: SLEEP DISORDER
     Dosage: 1 DF, 1D NIGHTLY PRN SLEEP
     Route: 048
  13. CHERATUSSIN AC (CODEINE + GUAIFENESIN) [Concomitant]
     Indication: COUGH
     Dosage: 10 ML Q4H PRN
     Route: 048
  14. FLONASE ALLERGY RELIEF [Suspect]
     Active Substance: FLUTICASONE PROPIONATE
     Indication: PRODUCT USED FOR UNKNOWN INDICATION
     Dosage: UNK
     Dates: start: 20160901, end: 20170925
  15. FLONASE SENSIMIST ALLERGY RELIEF [Suspect]
     Active Substance: FLUTICASONE FUROATE
     Indication: PRODUCT USED FOR UNKNOWN INDICATION
     Dosage: UNK
  16. SYMBICORT INHALATION POWDER [Concomitant]
     Indication: PRODUCT USED FOR UNKNOWN INDICATION
     Dosage: 2 DF, BID
     Route: 055
  17. FLUTICASONE PROP NASAL SPRAY [Suspect]
     Active Substance: FLUTICASONE PROPIONATE
     Indication: PRODUCT USED FOR UNKNOWN INDICATION
     Dosage: 2 DF, IN EACH NOSTRIL BID
     Route: 045
     Dates: end: 20171004
  18. CELEXA [Concomitant]
     Active Substance: CITALOPRAM HYDROBROMIDE
     Indication: PRODUCT USED FOR UNKNOWN INDICATION
     Dosage: 1 DF, 1D
     Route: 048
  19. TYLENOL # 3 (CODEINE + ACETAMINOPHEN) TABLET [Concomitant]
     Indication: PAIN
     Dosage: 1-2 DF, Q6H PRN
     Route: 048

REACTIONS (9)
  - Nasal septum perforation [Not Recovered/Not Resolved]
  - Sinus congestion [Unknown]
  - Rhinitis allergic [Unknown]
  - Nasal discomfort [Unknown]
  - Incorrect drug administration duration [Unknown]
  - Epistaxis [Unknown]
  - Overdose [Unknown]
  - Nasal disorder [Not Recovered/Not Resolved]
  - Drug prescribing error [Unknown]

NARRATIVE: CASE EVENT DATE: 201711
